FAERS Safety Report 4617093-9 (Version None)
Quarter: 2005Q1

REPORT INFORMATION
  Report Type: 
  Country: None (occurrence: None)
  Receive Date: 20050323
  Receipt Date: 20020516
  Transmission Date: 20050727
  Serious: Yes (Hospitalization, Disabling, Other)
  Sender: FDA-Public Use
  Company Number: US-MERCK-0205USA02063

PATIENT
  Age: 54 Year
  Sex: Male
  Weight: 80 kg

DRUGS (34)
  1. VIOXX [Suspect]
     Indication: ARTHRITIS
     Route: 048
     Dates: end: 20010101
  2. VIOXX [Suspect]
     Route: 065
     Dates: start: 20011001, end: 20020228
  3. VIOXX [Suspect]
     Route: 048
     Dates: start: 19990722
  4. VIOXX [Suspect]
     Route: 048
     Dates: start: 20020402
  5. VIOXX [Suspect]
     Route: 048
     Dates: start: 19990729, end: 19990924
  6. VIOXX [Suspect]
     Route: 048
     Dates: start: 20010118
  7. VIOXX [Suspect]
     Route: 048
     Dates: start: 20000127
  8. VIOXX [Suspect]
     Indication: ARTHRALGIA
     Route: 048
     Dates: end: 20010101
  9. VIOXX [Suspect]
     Route: 065
     Dates: start: 20011001, end: 20020228
  10. VIOXX [Suspect]
     Route: 048
     Dates: start: 19990722
  11. VIOXX [Suspect]
     Route: 048
     Dates: start: 20020402
  12. VIOXX [Suspect]
     Route: 048
     Dates: start: 19990729, end: 19990924
  13. VIOXX [Suspect]
     Route: 048
     Dates: start: 20010118
  14. VIOXX [Suspect]
     Route: 048
     Dates: start: 20000127
  15. ASPIRIN [Concomitant]
     Route: 065
     Dates: start: 20000101
  16. WELLBUTRIN [Concomitant]
     Route: 065
     Dates: start: 19970201
  17. LOVASTATIN [Concomitant]
     Indication: BLOOD CHOLESTEROL ABNORMAL
     Route: 065
     Dates: start: 20000101
  18. LOVASTATIN [Concomitant]
     Route: 065
  19. CODEINE [Concomitant]
     Route: 065
  20. [THERAPY UNSPECIFIED] [Concomitant]
     Indication: PAIN
     Route: 065
     Dates: start: 19710101
  21. NAPROXEN [Concomitant]
     Route: 065
     Dates: start: 19950101, end: 19980101
  22. FLEXERIL [Concomitant]
     Route: 065
     Dates: start: 20000127
  23. FLEXERIL [Concomitant]
     Route: 065
     Dates: start: 19990722
  24. TRAZODONE HYDROCHLORIDE [Concomitant]
     Route: 065
     Dates: start: 20000127
  25. ZOLOFT [Concomitant]
     Route: 065
  26. SULFASALAZINE [Concomitant]
     Route: 065
     Dates: start: 19990722
  27. ACETAMINOPHEN [Concomitant]
     Indication: ARTHRITIS
     Route: 065
  28. GABAPENTIN [Concomitant]
     Indication: FIBROMYALGIA
     Route: 065
  29. COMPAZINE [Concomitant]
     Indication: NAUSEA
     Route: 065
  30. SEROQUEL [Concomitant]
     Indication: SLEEP DISORDER
     Route: 065
  31. SEROQUEL [Concomitant]
     Route: 065
  32. BACLOFEN [Concomitant]
     Route: 065
     Dates: start: 20000127
  33. BACLOFEN [Concomitant]
     Route: 065
     Dates: start: 19990722
  34. MEDROL [Concomitant]
     Route: 065
     Dates: start: 19990722

REACTIONS (46)
  - ARRHYTHMIA [None]
  - ARTHRITIS [None]
  - BLINDNESS [None]
  - BRONCHITIS [None]
  - CATHETER SITE HAEMORRHAGE [None]
  - CHOLECYSTITIS CHRONIC [None]
  - CHOLELITHIASIS [None]
  - CORONARY ARTERY DISEASE [None]
  - DRUG INEFFECTIVE [None]
  - DUODENAL SCARRING [None]
  - EMOTIONAL DISTRESS [None]
  - FIBROMYALGIA [None]
  - GASTRITIS [None]
  - GASTROOESOPHAGEAL REFLUX DISEASE [None]
  - HAEMATURIA [None]
  - HERPES SIMPLEX [None]
  - HIATUS HERNIA [None]
  - HYPERMETROPIA [None]
  - HYPERREFLEXIA [None]
  - HYPERSENSITIVITY [None]
  - INGUINAL HERNIA [None]
  - IRRITABLE BOWEL SYNDROME [None]
  - JOINT CONTRACTURE [None]
  - MENTAL DISORDER [None]
  - MORTON'S NEUROMA [None]
  - MUSCLE CONTRACTIONS INVOLUNTARY [None]
  - MYOCARDIAL INFARCTION [None]
  - NASOPHARYNGITIS [None]
  - NAUSEA [None]
  - NECK PAIN [None]
  - NEPHROLITHIASIS [None]
  - OVERDOSE [None]
  - POLYCYTHAEMIA [None]
  - PRESBYOPIA [None]
  - PTERYGIUM [None]
  - ROAD TRAFFIC ACCIDENT [None]
  - SKIN DISCOLOURATION [None]
  - SKIN LACERATION [None]
  - TYMPANIC MEMBRANE PERFORATION [None]
  - UPPER RESPIRATORY TRACT INFECTION [None]
  - VERTIGO POSITIONAL [None]
  - VISION BLURRED [None]
  - VITREOUS FLOATERS [None]
  - VOMITING [None]
  - WHIPLASH INJURY [None]
  - WOUND INFECTION [None]
